FAERS Safety Report 23977794 (Version 4)
Quarter: 2024Q3

REPORT INFORMATION
  Report Type: Spontaneous
  Country: JP (occurrence: JP)
  Receive Date: 20240614
  Receipt Date: 20240717
  Transmission Date: 20241017
  Serious: Yes (Hospitalization)
  Sender: EISAI
  Company Number: JP-Eisai-202402919_LEN-EC_P_1

PATIENT
  Sex: Female

DRUGS (5)
  1. LENVIMA [Suspect]
     Active Substance: LENVATINIB
     Indication: Endometrial cancer
     Route: 048
     Dates: start: 20231130
  2. LENVIMA [Suspect]
     Active Substance: LENVATINIB
     Dosage: DOSE AND FREQUENCY UNKNOWN (DOSE REDUCED)
     Route: 048
  3. LENVIMA [Suspect]
     Active Substance: LENVATINIB
     Dosage: FREQUENCY UNKNOWN
     Route: 048
     Dates: end: 2024
  4. LENVIMA [Suspect]
     Active Substance: LENVATINIB
     Dosage: DOSE AND REQUENCY UNKNOWN
     Route: 048
     Dates: start: 20240709
  5. KEYTRUDA [Suspect]
     Active Substance: PEMBROLIZUMAB
     Indication: Endometrial cancer
     Route: 041
     Dates: start: 20231130, end: 20240604

REACTIONS (4)
  - Adrenal insufficiency [Recovered/Resolved]
  - Arthralgia [Not Recovered/Not Resolved]
  - Fatigue [Recovered/Resolved]
  - Weight decreased [Not Recovered/Not Resolved]

NARRATIVE: CASE EVENT DATE: 20240514
